FAERS Safety Report 8972142 (Version 2)
Quarter: 2013Q1

REPORT INFORMATION
  Report Type: Spontaneous
  Country: US (occurrence: US)
  Receive Date: 20121218
  Receipt Date: 20130128
  Transmission Date: 20140127
  Serious: Yes (Other)
  Sender: FDA-Public Use
  Company Number: US-GILEAD-2012-0066158

PATIENT
  Age: 44 Year
  Sex: Male

DRUGS (3)
  1. LETAIRIS [Suspect]
     Indication: PULMONARY HYPERTENSION
     Dosage: 10 MG, UNK
     Route: 048
     Dates: start: 20101210, end: 20121106
  2. LETAIRIS [Suspect]
     Indication: HIV INFECTION
  3. LETAIRIS [Suspect]
     Indication: DRUG ABUSE

REACTIONS (2)
  - Pneumonia [Unknown]
  - Malaise [Unknown]
